FAERS Safety Report 5744347-5 (Version None)
Quarter: 2008Q2

REPORT INFORMATION
  Report Type: 
  Country: None (occurrence: None)
  Receive Date: 20080520
  Receipt Date: 20080508
  Transmission Date: 20081010
  Serious: Yes (Hospitalization, Other)
  Sender: FDA-Public Use
  Company Number: US-ELI_LILLY_AND_COMPANY-US200805001614

PATIENT
  Sex: Female

DRUGS (1)
  1. FORTEO [Suspect]
     Indication: RHEUMATOID ARTHRITIS
     Dosage: 20 UG, UNK

REACTIONS (1)
  - SEPSIS [None]
